FAERS Safety Report 25527025 (Version 1)
Quarter: 2025Q3

REPORT INFORMATION
  Report Type: Spontaneous
  Country: CA (occurrence: CA)
  Receive Date: 20250708
  Receipt Date: 20250708
  Transmission Date: 20251020
  Serious: Yes (Hospitalization)
  Sender: VELOXIS PHARMACEUTICALS
  Company Number: CA-VELOXIS PHARMACEUTICALS, INC.-2025-VEL-00348

PATIENT
  Age: 60 Year
  Sex: Female

DRUGS (1)
  1. TACROLIMUS [Suspect]
     Active Substance: TACROLIMUS
     Indication: Renal transplant

REACTIONS (1)
  - Urine output decreased [Unknown]

NARRATIVE: CASE EVENT DATE: 20250601
